FAERS Safety Report 9507647 (Version 1)
Quarter: 2013Q3

REPORT INFORMATION
  Report Type: Spontaneous
  Country: US (occurrence: None)
  Receive Date: 20130906
  Receipt Date: 20130906
  Transmission Date: 20140515
  Serious: Yes (Hospitalization)
  Sender: FDA-Public Use
  Company Number: None

PATIENT
  Age: 57 Year
  Sex: Female
  Weight: 59.88 kg

DRUGS (6)
  1. MACROBID [Suspect]
     Indication: URINARY TRACT INFECTION
  2. SIMVASTIN [Concomitant]
  3. ACTIVELLA [Concomitant]
  4. NIACIN [Concomitant]
  5. BABY ASPIRIN [Concomitant]
  6. VITAMIN [Concomitant]

REACTIONS (10)
  - Urticaria [None]
  - Swelling [None]
  - Lymphadenopathy [None]
  - Chills [None]
  - Night sweats [None]
  - Dyspnoea [None]
  - Heart rate increased [None]
  - White blood cell count increased [None]
  - Pyrexia [None]
  - Nonspecific reaction [None]
